FAERS Safety Report 4972702-X (Version None)
Quarter: 2006Q1

REPORT INFORMATION
  Report Type: 
  Country: None (occurrence: None)
  Receive Date: 20060215
  Receipt Date: 20060103
  Transmission Date: 20060701
  Serious: No
  Sender: FDA-Public Use
  Company Number: USA0510110903

PATIENT
  Age: 76 Year
  Sex: Male

DRUGS (3)
  1. CIALIS [Suspect]
     Dosage: 20 MG, ORAL
     Route: 048
     Dates: start: 20051007
  2. MULTI-VITAMIN [Concomitant]
  3. SAW PALMETTO [Concomitant]

REACTIONS (1)
  - SYNCOPE [None]
